FAERS Safety Report 10218141 (Version 2)
Quarter: 2014Q2

REPORT INFORMATION
  Report Type: Spontaneous
  Country: US (occurrence: US)
  Receive Date: 20140605
  Receipt Date: 20140627
  Transmission Date: 20141212
  Serious: No
  Sender: FDA-Public Use
  Company Number: US-BIOGENIDEC-2014BI047908

PATIENT
  Age: 44 Year
  Sex: Male

DRUGS (4)
  1. TECFIDERA [Suspect]
     Indication: MULTIPLE SCLEROSIS
     Route: 048
     Dates: start: 20140410
  2. IBUPROFEN [Concomitant]
  3. ADVIL [Concomitant]
  4. TYLENOL 8 HOUR [Concomitant]

REACTIONS (4)
  - Paraesthesia [Unknown]
  - Dyspepsia [Unknown]
  - Diarrhoea [Unknown]
  - Flushing [Unknown]
